FAERS Safety Report 9732558 (Version 1)
Quarter: 2013Q4

REPORT INFORMATION
  Report Type: Spontaneous
  Country: US (occurrence: US)
  Receive Date: 20131205
  Receipt Date: 20131205
  Transmission Date: 20140711
  Serious: No
  Sender: FDA-Public Use
  Company Number: US-PFIZER INC-2013343435

PATIENT
  Sex: Male

DRUGS (1)
  1. BENZYLPENICILLIN POTASSIUM [Suspect]
     Dosage: UNK

REACTIONS (3)
  - Drug hypersensitivity [Unknown]
  - Urticaria [Unknown]
  - Dyspnoea [Unknown]
